FAERS Safety Report 24971378 (Version 2)
Quarter: 2025Q2

REPORT INFORMATION
  Report Type: Spontaneous
  Country: DE (occurrence: DE)
  Receive Date: 20250214
  Receipt Date: 20250515
  Transmission Date: 20250717
  Serious: No
  Sender: TRAVERE THERAPEUTICS
  Company Number: DE-BEH-2025195036

PATIENT
  Sex: Female

DRUGS (2)
  1. FILSPARI [Suspect]
     Active Substance: SPARSENTAN
     Indication: Product used for unknown indication
     Dosage: 200 MG, OD
     Route: 065
  2. FILSPARI [Suspect]
     Active Substance: SPARSENTAN
     Dosage: 400 MG, OD
     Route: 065

REACTIONS (1)
  - Arthralgia [Unknown]
